FAERS Safety Report 7521475-5 (Version None)
Quarter: 2011Q2

REPORT INFORMATION
  Report Type: 
  Country: None (occurrence: None)
  Receive Date: 20110603
  Receipt Date: 20110520
  Transmission Date: 20111010
  Serious: Yes (Hospitalization)
  Sender: FDA-Public Use
  Company Number: DE-BAYER-201046853GPV

PATIENT
  Age: 69 Year
  Sex: Male

DRUGS (10)
  1. SORAFENIB (RAF KINASE INHIBITOR) [Suspect]
     Indication: HEPATIC NEOPLASM MALIGNANT
     Route: 048
     Dates: start: 20100222, end: 20100315
  2. ERLOTINIB HYDROCHLORIDE [Suspect]
     Dosage: DAILY DOSE 50 MG
     Route: 048
     Dates: start: 20100714, end: 20101108
  3. IMODIUM [Concomitant]
     Indication: DIARRHOEA
     Route: 048
     Dates: start: 20100315
  4. ARIXTRA [Concomitant]
     Indication: PULMONARY EMBOLISM
     Dosage: 7.5 MG (DAILY DOSE), , SUBCUTANEOUS
     Route: 058
     Dates: start: 20100213
  5. ERLOTINIB HYDROCHLORIDE [Suspect]
     Dosage: DAILY DOSE 100 MG
     Route: 048
     Dates: start: 20100323, end: 20100504
  6. SORAFENIB (RAF KINASE INHIBITOR) [Suspect]
     Dosage: 400 MG, BID
     Route: 048
     Dates: start: 20100323, end: 20100505
  7. ERLOTINIB HYDROCHLORIDE [Suspect]
     Indication: HEPATIC NEOPLASM MALIGNANT
     Dosage: DAILY DOSE 150 MG
     Route: 048
     Dates: start: 20100222, end: 20100315
  8. ERLOTINIB HYDROCHLORIDE [Suspect]
     Dosage: DAILY DOSE 100 MG
     Route: 048
     Dates: start: 20100519, end: 20100628
  9. SORAFENIB (RAF KINASE INHIBITOR) [Suspect]
     Dosage: 400 MG, QD
     Route: 048
     Dates: start: 20100714, end: 20101108
  10. SORAFENIB (RAF KINASE INHIBITOR) [Suspect]
     Dosage: 400 MG, QD
     Route: 048
     Dates: start: 20100519, end: 20100628

REACTIONS (1)
  - HAEMOTHORAX [None]
